FAERS Safety Report 17949564 (Version 1)
Quarter: 2020Q2

REPORT INFORMATION
  Report Type: Spontaneous
  Country: BR (occurrence: BR)
  Receive Date: 20200626
  Receipt Date: 20200626
  Transmission Date: 20200714
  Serious: Yes (Other)
  Sender: FDA-Public Use
  Company Number: BR-TORRENT-00005364

PATIENT
  Age: 34 Year
  Sex: Male
  Weight: 115 kg

DRUGS (1)
  1. ROSUCOR [Suspect]
     Active Substance: ROSUVASTATIN CALCIUM
     Indication: HYPERCHOLESTEROLAEMIA
     Dosage: ONE TABLET DAILY
     Route: 048
     Dates: start: 202003, end: 20200601

REACTIONS (3)
  - Choking [Recovering/Resolving]
  - Laryngeal oedema [Recovering/Resolving]
  - Dysphagia [Recovering/Resolving]

NARRATIVE: CASE EVENT DATE: 202005
